FAERS Safety Report 9164949 (Version 2)
Quarter: 2013Q2

REPORT INFORMATION
  Report Type: Report from Study
  Country: US (occurrence: US)
  Receive Date: 20130315
  Receipt Date: 20130403
  Transmission Date: 20140414
  Serious: No
  Sender: FDA-Public Use
  Company Number: US-VERTEX PHARMACEUTICALS INC.-2013-003423

PATIENT
  Age: 55 Year
  Sex: Male
  Weight: 97 kg

DRUGS (6)
  1. VX-950 (TELAPREVIR) [Suspect]
     Indication: HEPATITIS C
     Dosage: 750 MG, TID
     Route: 048
  2. RIBASPHERE [Suspect]
     Indication: HEPATITIS C
     Dosage: 200 MG
  3. PEGASYS [Suspect]
     Indication: HEPATITIS C
     Dosage: PROCLICK
  4. MULTIPLE VITAMINS [Concomitant]
  5. XANAX [Concomitant]
     Dosage: 0.25 MG
  6. ZYRTEC [Concomitant]
     Dosage: 5 MG

REACTIONS (8)
  - Dizziness [Unknown]
  - Emotional disorder [Unknown]
  - Blood pressure decreased [Unknown]
  - Crying [Unknown]
  - Fatigue [Unknown]
  - Urticaria [Unknown]
  - Red blood cell count decreased [Unknown]
  - Rectal haemorrhage [Unknown]
